FAERS Safety Report 4888324-5 (Version None)
Quarter: 2006Q1

REPORT INFORMATION
  Report Type: 
  Country: None (occurrence: None)
  Receive Date: 20060123
  Receipt Date: 20060110
  Transmission Date: 20060701
  Serious: Yes (Other)
  Sender: FDA-Public Use
  Company Number: FR-GLAXOSMITHKLINE-B0406671A

PATIENT
  Age: 27 Year
  Sex: Female

DRUGS (3)
  1. LAMICTAL [Suspect]
     Indication: EPILEPSY
     Dosage: 50MG TWICE PER DAY
     Route: 048
     Dates: start: 20030101
  2. FOLATE [Concomitant]
     Dosage: 10MG PER DAY
     Route: 065
     Dates: start: 20050101
  3. TARDYFERON [Concomitant]
     Dosage: 1TAB PER DAY
     Route: 048
     Dates: start: 20050201

REACTIONS (3)
  - DRUG EXPOSURE DURING PREGNANCY [None]
  - NORMAL NEWBORN [None]
  - PREMATURE RUPTURE OF MEMBRANES [None]
